FAERS Safety Report 23947949 (Version 1)
Quarter: 2024Q2

REPORT INFORMATION
  Report Type: Report from Study
  Country: US (occurrence: US)
  Receive Date: 20240606
  Receipt Date: 20240606
  Transmission Date: 20240716
  Serious: No
  Sender: FDA-Public Use
  Company Number: US-ABBVIE-5783728

PATIENT
  Sex: Female

DRUGS (1)
  1. SKYRIZI [Suspect]
     Active Substance: RISANKIZUMAB-RZAA
     Indication: Psoriatic arthropathy
     Route: 058

REACTIONS (5)
  - Osteomyelitis [Recovering/Resolving]
  - Pneumonia [Recovering/Resolving]
  - Liver injury [Recovering/Resolving]
  - Red blood cell count decreased [Recovering/Resolving]
  - Dehydration [Recovering/Resolving]
